FAERS Safety Report 7329407-X (Version None)
Quarter: 2011Q1

REPORT INFORMATION
  Report Type: 
  Country: None (occurrence: None)
  Receive Date: 20110218
  Receipt Date: 20110207
  Transmission Date: 20110831
  Serious: Yes (Death)
  Sender: FDA-Public Use
  Company Number: 026684

PATIENT
  Sex: Female
  Weight: 75 kg

DRUGS (6)
  1. LACOSAMIDE [Suspect]
     Indication: EPILEPSY
     Dosage: (200 MG BID ORAL)
     Route: 048
     Dates: start: 20091201, end: 20110115
  2. RIVOTRIL [Concomitant]
  3. IMPLANON [Concomitant]
  4. DEPAKINE CHRONO /01294701/ [Concomitant]
  5. GARDENAL /00023201/ [Concomitant]
  6. TERCIAN /00759301/ [Concomitant]

REACTIONS (1)
  - SUDDEN UNEXPLAINED DEATH IN EPILEPSY [None]
